FAERS Safety Report 21303340 (Version 1)
Quarter: 2022Q3

REPORT INFORMATION
  Report Type: Spontaneous
  Country: GB (occurrence: GB)
  Receive Date: 20220907
  Receipt Date: 20220907
  Transmission Date: 20221026
  Serious: Yes (Death, Life-Threatening)
  Sender: FDA-Public Use
  Company Number: GB-MHRA-MED-202208281126457890-DQKJV

PATIENT
  Age: 72 Year
  Sex: Female

DRUGS (7)
  1. PACLITAXEL [Suspect]
     Active Substance: PACLITAXEL
     Indication: Adverse drug reaction
     Dosage: 90MG; THERAPY DURATION : 35  DAYS
     Route: 065
     Dates: start: 20210629, end: 20210803
  2. PACLITAXEL [Suspect]
     Active Substance: PACLITAXEL
     Indication: Chemotherapy
  3. DURVALUMAB [Suspect]
     Active Substance: DURVALUMAB
     Indication: Adverse drug reaction
     Dosage: 1500MG, THERAPY END DATE : NOT ASKED
     Route: 065
     Dates: start: 20210913
  4. DURVALUMAB [Suspect]
     Active Substance: DURVALUMAB
     Indication: Adjuvant therapy
  5. DURVALUMAB [Suspect]
     Active Substance: DURVALUMAB
     Indication: Non-small cell lung cancer
  6. CARBOPLATIN [Concomitant]
     Active Substance: CARBOPLATIN
     Indication: Adverse drug reaction
     Dosage: THERAPY DURATION : 35  DAYS
     Dates: start: 20210629, end: 20210803
  7. CARBOPLATIN [Concomitant]
     Active Substance: CARBOPLATIN
     Indication: Radiochemotherapy

REACTIONS (1)
  - Death [Fatal]

NARRATIVE: CASE EVENT DATE: 20210930
